FAERS Safety Report 7455873-5 (Version None)
Quarter: 2011Q2

REPORT INFORMATION
  Report Type: 
  Country: None (occurrence: None)
  Receive Date: 20110503
  Receipt Date: 20110425
  Transmission Date: 20111010
  Serious: Yes (Hospitalization)
  Sender: FDA-Public Use
  Company Number: A0924406A

PATIENT
  Age: 78 Year
  Sex: Male

DRUGS (4)
  1. PROTONIX [Concomitant]
  2. SIMVASTATIN [Concomitant]
  3. AVANDAMET [Suspect]
     Dosage: 1CAP TWICE PER DAY
     Route: 048
     Dates: start: 20050101, end: 20100420
  4. ADVAIR DISKUS 100/50 [Concomitant]

REACTIONS (1)
  - HEART RATE DECREASED [None]
